FAERS Safety Report 18259387 (Version 1)
Quarter: 2020Q3

REPORT INFORMATION
  Report Type: Report from Study
  Country: None (occurrence: AR)
  Receive Date: 20200911
  Receipt Date: 20200911
  Transmission Date: 20201103
  Serious: Yes (Hospitalization)
  Sender: FDA-Public Use
  Company Number: AR-ABBVIE-20K-007-3562109-00

PATIENT
  Age: 56 Year
  Sex: Female

DRUGS (1)
  1. HUMIRA [Suspect]
     Active Substance: ADALIMUMAB
     Indication: RHEUMATOID ARTHRITIS
     Route: 058
     Dates: start: 20191009

REACTIONS (4)
  - Malaise [Recovering/Resolving]
  - Abdominal pain upper [Recovering/Resolving]
  - Pyrexia [Recovering/Resolving]
  - Diarrhoea [Recovering/Resolving]

NARRATIVE: CASE EVENT DATE: 20200907
